FAERS Safety Report 8973126 (Version 3)
Quarter: 2013Q2

REPORT INFORMATION
  Report Type: Spontaneous
  Country: DK (occurrence: DK)
  Receive Date: 20121218
  Receipt Date: 20130404
  Transmission Date: 20140414
  Serious: Yes (Other)
  Sender: FDA-Public Use
  Company Number: DK-MERCK-1212DNK005584

PATIENT
  Age: 84 Year
  Sex: Female

DRUGS (4)
  1. ALENDRONATE SODIUM [Suspect]
     Indication: OSTEOPOROSIS
     Dosage: 70MG (70 MG EVERY 14 DAY)
     Route: 048
     Dates: start: 2006
  2. ZOMETA [Suspect]
     Indication: PLASMA CELL MYELOMA
     Dosage: 4 MG / 100 ML
     Route: 042
     Dates: start: 20070907
  3. DEXAMETHASONE [Concomitant]
     Indication: PLASMA CELL MYELOMA
  4. ALKERAN (MELPHALAN) [Concomitant]
     Indication: PLASMA CELL MYELOMA

REACTIONS (5)
  - Purulent discharge [Recovered/Resolved]
  - Osteonecrosis of jaw [Recovered/Resolved]
  - Jaw operation [Recovered/Resolved]
  - Jaw operation [Recovered/Resolved]
  - Tooth extraction [Unknown]
